FAERS Safety Report 6737373-0 (Version None)
Quarter: 2010Q2

REPORT INFORMATION
  Report Type: 
  Country: None (occurrence: None)
  Receive Date: 20100524
  Receipt Date: 20100514
  Transmission Date: 20101027
  Serious: Yes (Other)
  Sender: FDA-Public Use
  Company Number: JP-JNJFOC-20100505900

PATIENT

DRUGS (1)
  1. DUROTEP MT PATCH [Suspect]
     Indication: CANCER PAIN
     Route: 062

REACTIONS (2)
  - CARDIAC ARREST [None]
  - WRONG TECHNIQUE IN DRUG USAGE PROCESS [None]
